FAERS Safety Report 7034839-3 (Version None)
Quarter: 2010Q4

REPORT INFORMATION
  Report Type: 
  Country: None (occurrence: None)
  Receive Date: 20101008
  Receipt Date: 20100929
  Transmission Date: 20110411
  Serious: Yes (Death, Other)
  Sender: FDA-Public Use
  Company Number: US-GENZYME-FABR-1001591

PATIENT
  Sex: Female
  Weight: 110 kg

DRUGS (2)
  1. FABRAZYME [Suspect]
     Indication: FABRY'S DISEASE
     Dosage: 100 MG, Q2W
     Dates: start: 20040401
  2. FABRAZYME [Suspect]
     Dosage: 100 MG, Q3W
     Route: 042

REACTIONS (3)
  - KIDNEY TRANSPLANT REJECTION [None]
  - PNEUMONIA [None]
  - RENAL TRANSPLANT [None]
